FAERS Safety Report 23383352 (Version 1)
Quarter: 2024Q1

REPORT INFORMATION
  Report Type: Spontaneous
  Country: US (occurrence: US)
  Receive Date: 20240109
  Receipt Date: 20240109
  Transmission Date: 20240410
  Serious: No
  Sender: FDA-Public Use
  Company Number: US-SA-SAC20240102000474

PATIENT
  Age: 59 Year
  Sex: Male
  Weight: 81.633 kg

DRUGS (5)
  1. DUPIXENT [Suspect]
     Active Substance: DUPILUMAB
     Indication: Dermatitis
     Dosage: 300 MG, QOW
     Route: 058
     Dates: start: 20231017
  2. LISINOPRIL [Concomitant]
     Active Substance: LISINOPRIL
  3. VEGAPRO [Concomitant]
     Dosage: 17G-80KCAL
  4. HERBALS\TURMERIC [Concomitant]
     Active Substance: HERBALS\TURMERIC
  5. VITAMINS NOS [Concomitant]
     Active Substance: VITAMINS
     Dosage: MULTIVITAMIN 50 PLUS

REACTIONS (4)
  - Dermatitis atopic [Not Recovered/Not Resolved]
  - Dry skin [Not Recovered/Not Resolved]
  - Skin fissures [Not Recovered/Not Resolved]
  - Drug ineffective for unapproved indication [Unknown]

NARRATIVE: CASE EVENT DATE: 20230101
